FAERS Safety Report 5082955-8 (Version None)
Quarter: 2006Q3

REPORT INFORMATION
  Report Type: 
  Country: None (occurrence: None)
  Receive Date: 20060814
  Receipt Date: 20060809
  Transmission Date: 20061208
  Serious: Yes (Death, Life-Threatening, Disabling)
  Sender: FDA-Public Use
  Company Number: 224271

PATIENT
  Age: 65 Year
  Sex: Male

DRUGS (6)
  1. ACTIVACIN(ALTEPLASE) PWDR + SOLVENT,INFUSION SOLN [Suspect]
     Indication: CEREBRAL ARTERY EMBOLISM
     Dosage: 38.4 MG, SINGLE, INTRAVENOUS
     Route: 042
     Dates: start: 20060206
  2. RADICUT (EDARAVONE) [Suspect]
     Indication: CEREBRAL ARTERY EMBOLISM
     Dosage: 60 MG, INTRAVENOUS
     Route: 042
     Dates: start: 20060206, end: 20060208
  3. ISOZOL (THIAMYLAL SODIUM) [Suspect]
     Indication: CEREBRAL ARTERY EMBOLISM
     Dosage: 1500 MG, INTRAVENOUS
     Route: 042
     Dates: start: 20060208, end: 20060210
  4. WARFARIN SODIUM [Concomitant]
  5. PRIMPERAN ELIXIR [Concomitant]
  6. IMOVAN (DOPAMINE HYDROCHLORIDE) [Concomitant]

REACTIONS (11)
  - ASPARTATE AMINOTRANSFERASE INCREASED [None]
  - BLOOD CREATININE INCREASED [None]
  - BLOOD UREA INCREASED [None]
  - BRAIN HERNIATION [None]
  - BRAIN OEDEMA [None]
  - CEREBRAL ARTERY EMBOLISM [None]
  - DEPRESSED LEVEL OF CONSCIOUSNESS [None]
  - GENERAL PHYSICAL HEALTH DETERIORATION [None]
  - HAEMORRHAGIC CEREBRAL INFARCTION [None]
  - LIVER DISORDER [None]
  - RENAL DISORDER [None]
